FAERS Safety Report 17759782 (Version 1)
Quarter: 2020Q2

REPORT INFORMATION
  Report Type: Spontaneous
  Country: US (occurrence: US)
  Receive Date: 20200506
  Receipt Date: 20200506
  Transmission Date: 20200714
  Serious: Yes (Disabling, Other)
  Sender: FDA-Public Use
  Company Number: None

PATIENT
  Age: 78 Year
  Sex: Male
  Weight: 71.21 kg

DRUGS (9)
  1. ALFUZOSIN [Concomitant]
     Active Substance: ALFUZOSIN
  2. ALLPURINOL [Concomitant]
     Active Substance: ALLOPURINOL
  3. POTASSIUM CITRATE. [Concomitant]
     Active Substance: POTASSIUM CITRATE
  4. VALSARTAN/HCTZ 320-25MG [Suspect]
     Active Substance: HYDROCHLOROTHIAZIDE\VALSARTAN
     Indication: HYPERTENSION
     Dosage: ?          QUANTITY:0.5 DF DOSAGE FORM;?
     Route: 048
     Dates: start: 20130116, end: 20190829
  5. VITAMIN D3 [Concomitant]
     Active Substance: CHOLECALCIFEROL
  6. DIOVAN HCT [Suspect]
     Active Substance: HYDROCHLOROTHIAZIDE\VALSARTAN
     Dates: start: 2013, end: 2019
  7. GABAPENTIN. [Concomitant]
     Active Substance: GABAPENTIN
  8. IRBESARTAN/HCTZ [Concomitant]
     Active Substance: HYDROCHLOROTHIAZIDE\IRBESARTAN
  9. BACLOFEN. [Concomitant]
     Active Substance: BACLOFEN

REACTIONS (1)
  - Renal cancer [None]

NARRATIVE: CASE EVENT DATE: 20140716
